FAERS Safety Report 9898801 (Version 1)
Quarter: 2014Q1

REPORT INFORMATION
  Report Type: Spontaneous
  Country: CA (occurrence: CA)
  Receive Date: 20140214
  Receipt Date: 20140214
  Transmission Date: 20141002
  Serious: Yes (Disabling, Other)
  Sender: FDA-Public Use
  Company Number: CA-IAC JAPAN XML-CAN-2014-0004698

PATIENT
  Age: 84 Year
  Sex: Female

DRUGS (2)
  1. BUTRANS TRANSDERMAL PATCH - 10 MCG/HR [Suspect]
     Indication: PRODUCT USED FOR UNKNOWN INDICATION
     Dosage: 10 MCG, UNK
     Route: 062
  2. BUTRANS TRANSDERMAL PATCH - 5 MCG/HR [Suspect]
     Indication: PRODUCT USED FOR UNKNOWN INDICATION
     Dosage: 5 MCG, Q1H
     Route: 062

REACTIONS (1)
  - Cognitive disorder [Not Recovered/Not Resolved]
